FAERS Safety Report 22321236 (Version 9)
Quarter: 2024Q1

REPORT INFORMATION
  Report Type: Report from Study
  Country: US (occurrence: US)
  Receive Date: 20230515
  Receipt Date: 20240326
  Transmission Date: 20240410
  Serious: Yes (Hospitalization, Other)
  Sender: FDA-Public Use
  Company Number: US-BoehringerIngelheim-2023-BI-221602

PATIENT
  Age: 84 Year
  Sex: Female

DRUGS (5)
  1. OFEV [Suspect]
     Active Substance: NINTEDANIB
     Indication: Idiopathic pulmonary fibrosis
     Dosage: OFEV DOSE 200MG DAILY
     Route: 048
     Dates: start: 20220809
  2. OFEV [Suspect]
     Active Substance: NINTEDANIB
     Dosage: LOT NUMBER 204120A,204096,204121
     Route: 048
     Dates: start: 20220808
  3. UPTRAVI [Concomitant]
     Active Substance: SELEXIPAG
     Indication: Product used for unknown indication
  4. AMBRISENTAN [Concomitant]
     Active Substance: AMBRISENTAN
     Indication: Product used for unknown indication
  5. TADALAFIL [Concomitant]
     Active Substance: TADALAFIL
     Indication: Product used for unknown indication

REACTIONS (10)
  - Fluid replacement [Recovered/Resolved]
  - Transfusion [Recovered/Resolved]
  - Dyspnoea [Unknown]
  - Epistaxis [Unknown]
  - Cardiac failure congestive [Unknown]
  - Fluid retention [Unknown]
  - COVID-19 [Unknown]
  - Pneumonia [Unknown]
  - Malaise [Unknown]
  - Anaemia [Unknown]

NARRATIVE: CASE EVENT DATE: 20230907
